FAERS Safety Report 4293910-X (Version None)
Quarter: 2004Q1

REPORT INFORMATION
  Report Type: 
  Country: None (occurrence: None)
  Receive Date: 20040211
  Receipt Date: 20040211
  Transmission Date: 20041129
  Serious: Yes (Hospitalization)
  Sender: FDA-Public Use
  Company Number: None

PATIENT
  Age: 32 Year
  Sex: Male
  Weight: 100.2 kg

DRUGS (7)
  1. TEQUIN [Suspect]
     Indication: PNEUMONIA
     Dosage: TEQUIN 200 IV QD
     Route: 042
  2. ADALAT [Concomitant]
  3. LOPRESSOR [Concomitant]
  4. LASIX [Concomitant]
  5. RENAGEL [Concomitant]
  6. COUMADIN [Concomitant]
  7. VASOTEC [Concomitant]

REACTIONS (2)
  - BLOOD GLUCOSE INCREASED [None]
  - DIABETES MELLITUS INSULIN-DEPENDENT [None]
